FAERS Safety Report 5277673-7 (Version None)
Quarter: 2007Q1

REPORT INFORMATION
  Report Type: 
  Country: None (occurrence: None)
  Receive Date: 20070327
  Receipt Date: 20070319
  Transmission Date: 20070707
  Serious: No
  Sender: FDA-Public Use
  Company Number: HQWYE586107DEC06

PATIENT
  Sex: Female

DRUGS (4)
  1. ENBREL [Suspect]
     Indication: RHEUMATOID ARTHRITIS
     Route: 058
     Dates: start: 20060928, end: 20061020
  2. TAKEPRON [Concomitant]
  3. ISCOTIN [Concomitant]
  4. VOLTAREN-XR [Concomitant]
     Indication: RHEUMATOID ARTHRITIS

REACTIONS (1)
  - HEPATIC FUNCTION ABNORMAL [None]
